FAERS Safety Report 8516611-8 (Version None)
Quarter: 2012Q3

REPORT INFORMATION
  Report Type: 
  Country: None (occurrence: None)
  Receive Date: 20120718
  Receipt Date: 20120706
  Transmission Date: 20120928
  Serious: Yes (Other)
  Sender: FDA-Public Use
  Company Number: BR-ACCORD-014055

PATIENT
  Age: 61 Year
  Sex: Female
  Weight: 54.3 kg

DRUGS (10)
  1. DIPHENHYDRAMINE HCL [Concomitant]
     Route: 042
     Dates: start: 20120507, end: 20120507
  2. ONDANSETRON [Concomitant]
     Route: 042
     Dates: start: 20120507, end: 20120507
  3. CARBOPLATIN [Concomitant]
     Dosage: IN CYCLE 2
     Route: 042
     Dates: start: 20120507, end: 20120507
  4. DEXAMETHASONE [Concomitant]
     Route: 042
     Dates: start: 20120507, end: 20120507
  5. RANITIDINE [Concomitant]
     Route: 048
     Dates: start: 20120504, end: 20120511
  6. DEXAMETHASONE [Concomitant]
     Route: 048
     Dates: start: 20120506, end: 20120509
  7. CHLOROQUINE PHOSPHATE [Concomitant]
     Route: 048
  8. PACLITAXEL [Suspect]
     Dosage: IN CYCLE 2
     Route: 042
     Dates: start: 20120507, end: 20120507
  9. RANITIDINE [Concomitant]
     Route: 042
     Dates: start: 20120507, end: 20120507
  10. LACTULOSE [Concomitant]
     Route: 048
     Dates: start: 20120504, end: 20120604

REACTIONS (2)
  - TACHYCARDIA [None]
  - PHOTOPSIA [None]
